FAERS Safety Report 8999654 (Version 1)
Quarter: 2013Q1

REPORT INFORMATION
  Report Type: Spontaneous
  Country: US (occurrence: US)
  Receive Date: 20130103
  Receipt Date: 20130103
  Transmission Date: 20140127
  Serious: Yes (Hospitalization, Other)
  Sender: FDA-Public Use
  Company Number: US-ELI_LILLY_AND_COMPANY-US201212008478

PATIENT
  Sex: Male

DRUGS (2)
  1. CIALIS [Suspect]
     Indication: ERECTILE DYSFUNCTION
     Dosage: 20 MG, PRN
     Dates: start: 2005, end: 2010
  2. BENAZEPRIL [Concomitant]
     Indication: BLOOD PRESSURE

REACTIONS (3)
  - Colon cancer [Recovered/Resolved]
  - Glucose tolerance impaired [Unknown]
  - Libido decreased [Unknown]
